FAERS Safety Report 6284425-8 (Version None)
Quarter: 2009Q3

REPORT INFORMATION
  Report Type: 
  Country: None (occurrence: None)
  Receive Date: 20090727
  Receipt Date: 20090721
  Transmission Date: 20100115
  Serious: Yes (Death, Life-Threatening)
  Sender: FDA-Public Use
  Company Number: IN-ROCHE-645231

PATIENT
  Sex: Female
  Weight: 63 kg

DRUGS (6)
  1. CAPECITABINE [Suspect]
     Indication: BREAST CANCER
     Dosage: CUMULATIVE DOSE: 56000 MG, COMPLETED CYCLE 1
     Route: 048
     Dates: start: 20081231, end: 20090113
  2. INSULIN [Concomitant]
     Dates: start: 20070501
  3. METFORMIN HCL [Concomitant]
     Dates: start: 20070501
  4. CALCIUM [Concomitant]
     Dates: start: 20080605
  5. NIMESULIDE [Concomitant]
     Dates: start: 20081015
  6. ACETAMINOPHEN [Concomitant]
     Dates: start: 20081015

REACTIONS (2)
  - ASPHYXIA [None]
  - DEATH [None]
